FAERS Safety Report 23768787 (Version 1)
Quarter: 2024Q2

REPORT INFORMATION
  Report Type: Spontaneous
  Country: US (occurrence: None)
  Receive Date: 20240419
  Receipt Date: 20240419
  Transmission Date: 20240715
  Serious: No
  Sender: FDA-Public Use
  Company Number: None

PATIENT
  Age: 71 Year
  Sex: Female
  Weight: 55.8 kg

DRUGS (4)
  1. CIPROFLOXACIN [Suspect]
     Active Substance: CIPROFLOXACIN
     Indication: Enterocolitis
  2. LIPITOR [Concomitant]
  3. ATENOLOL [Concomitant]
  4. Multi Vitamin [Concomitant]

REACTIONS (6)
  - Arthralgia [None]
  - Tendonitis [None]
  - Muscle twitching [None]
  - Pain in extremity [None]
  - Peripheral swelling [None]
  - Paraesthesia [None]

NARRATIVE: CASE EVENT DATE: 20240417
